FAERS Safety Report 8436134-4 (Version None)
Quarter: 2012Q2

REPORT INFORMATION
  Report Type: 
  Country: None (occurrence: None)
  Receive Date: 20120614
  Receipt Date: 20120608
  Transmission Date: 20120825
  Serious: Yes (Hospitalization)
  Sender: FDA-Public Use
  Company Number: DE-ROCHE-1077394

PATIENT
  Age: 15 Year
  Sex: Female

DRUGS (2)
  1. XOLAIR [Suspect]
     Indication: ASTHMA
     Route: 058
     Dates: start: 20100101
  2. XOLAIR [Suspect]
     Dates: start: 20120605

REACTIONS (3)
  - ERYTHEMA [None]
  - PRURITUS [None]
  - CHILLS [None]
